FAERS Safety Report 7080125-5 (Version None)
Quarter: 2010Q4

REPORT INFORMATION
  Report Type: 
  Country: None (occurrence: None)
  Receive Date: 20101102
  Receipt Date: 20101025
  Transmission Date: 20110411
  Serious: Yes (Other)
  Sender: FDA-Public Use
  Company Number: BR-SANOFI-AVENTIS-2010SA065401

PATIENT
  Age: 53 Year
  Sex: Female
  Weight: 72 kg

DRUGS (3)
  1. LANTUS [Suspect]
     Route: 058
     Dates: start: 20100101
  2. AUTOPEN 24 [Suspect]
  3. METFORMIN [Concomitant]
     Route: 048
     Dates: start: 20100101

REACTIONS (2)
  - CORNEAL TRANSPLANT [None]
  - HERPES OPHTHALMIC [None]
